FAERS Safety Report 17229875 (Version 1)
Quarter: 2019Q4

REPORT INFORMATION
  Report Type: Spontaneous
  Country: US (occurrence: US)
  Receive Date: 20191210
  Receipt Date: 20191210
  Transmission Date: 20200122
  Serious: Yes (Other)
  Sender: FDA-Public Use
  Company Number: None

PATIENT
  Age: 80 Year
  Sex: Male
  Weight: 53.52 kg

DRUGS (6)
  1. MULTI-VITAMIN [Concomitant]
     Active Substance: .ALPHA.-TOCOPHEROL ACETATE, DL-\ASCORBIC ACID\CYANOCOBALAMIN\FLUORIDE ION\FOLIC ACID\NIACIN\PYRIDOXINE\RIBOFLAVIN\THIAMINE\VITAMIN A\VITAMIN D
  2. CALCIUM [Concomitant]
     Active Substance: CALCIUM
  3. VITAMIN B12 [Concomitant]
     Active Substance: CYANOCOBALAMIN
  4. VITAMIN D3 [Concomitant]
     Active Substance: CHOLECALCIFEROL
  5. CIPROFLOXACIN. [Suspect]
     Active Substance: CIPROFLOXACIN
     Indication: URINARY TRACT INFECTION
     Dosage: ?          QUANTITY:500 MG MILLIGRAM(S);?
     Route: 048
     Dates: start: 20191104, end: 20191110
  6. VITAMIN E [Concomitant]
     Active Substance: .ALPHA.-TOCOPHEROL

REACTIONS (12)
  - Chills [None]
  - Groin pain [None]
  - Asthenia [None]
  - Tinnitus [None]
  - Dysuria [None]
  - Product complaint [None]
  - Malaise [None]
  - Feeling cold [None]
  - Visual impairment [None]
  - Pain in extremity [None]
  - Pain [None]
  - Mental disorder [None]

NARRATIVE: CASE EVENT DATE: 20191104
